FAERS Safety Report 4705658-5 (Version None)
Quarter: 2005Q2

REPORT INFORMATION
  Report Type: 
  Country: None (occurrence: None)
  Receive Date: 20050629
  Receipt Date: 20050617
  Transmission Date: 20051028
  Serious: Yes (Hospitalization)
  Sender: FDA-Public Use
  Company Number: 2005AL002329

PATIENT
  Age: 24 Month
  Sex: Female

DRUGS (7)
  1. SERAX [Suspect]
     Dosage: PO
     Route: 048
     Dates: start: 20050422, end: 20050422
  2. ANAFRANIL [Suspect]
     Dosage: PO
     Route: 048
     Dates: end: 20050422
  3. ATHYMIL [Suspect]
     Dosage: PO
     Route: 048
  4. DI-ANTALVIC [Suspect]
     Dosage: PO
     Route: 048
     Dates: start: 20050422, end: 20050422
  5. IMOVANE [Suspect]
     Dosage: PO
     Route: 048
  6. PROPRANOLOL [Suspect]
     Dosage: PO
     Route: 048
  7. TERCIAN [Suspect]
     Dosage: PO
     Route: 048
     Dates: start: 20050422, end: 20050422

REACTIONS (8)
  - ACCIDENTAL DRUG INTAKE BY CHILD [None]
  - ACCIDENTAL OVERDOSE [None]
  - AGGRESSION [None]
  - COORDINATION ABNORMAL [None]
  - MIOSIS [None]
  - RESTLESSNESS [None]
  - SOMNOLENCE [None]
  - WRONG DRUG ADMINISTERED [None]
